FAERS Safety Report 22230834 (Version 1)
Quarter: 2023Q2

REPORT INFORMATION
  Report Type: Spontaneous
  Country: CN (occurrence: None)
  Receive Date: 20230420
  Receipt Date: 20230420
  Transmission Date: 20230721
  Serious: Yes (Hospitalization)
  Sender: FDA-Public Use
  Company Number: CN-ROCHE-3332411

PATIENT
  Age: 68 Year
  Sex: Female
  Weight: 60 kg

DRUGS (9)
  1. MABTHERA [Suspect]
     Active Substance: RITUXIMAB
     Indication: Neoplasm
     Route: 041
     Dates: start: 20230323, end: 20230323
  2. MABTHERA [Suspect]
     Active Substance: RITUXIMAB
     Route: 041
     Dates: start: 20230323, end: 20230323
  3. CYCLOPHOSPHAMIDE [Suspect]
     Active Substance: CYCLOPHOSPHAMIDE
     Indication: Neoplasm
     Route: 040
     Dates: start: 20230323, end: 20230323
  4. EPIRUBICIN HYDROCHLORIDE [Suspect]
     Active Substance: EPIRUBICIN HYDROCHLORIDE
     Indication: Neoplasm
     Route: 041
     Dates: start: 20230323, end: 20230324
  5. VINDESINE SULFATE [Suspect]
     Active Substance: VINDESINE SULFATE
     Indication: Neoplasm
     Route: 042
     Dates: start: 20230323, end: 20230323
  6. VINDESINE SULFATE [Suspect]
     Active Substance: VINDESINE SULFATE
     Route: 042
     Dates: start: 20230331, end: 20230331
  7. RECOMBINANT HUMAN GRANULOCYTE STIMULATING FACTOR (UNK INGREDIENTS) [Concomitant]
  8. CAFFEIC ACID [Concomitant]
     Active Substance: CAFFEIC ACID
  9. AMINOPEPTIDE (UNK INGREDIENTS) [Concomitant]

REACTIONS (1)
  - Myelosuppression [Recovered/Resolved]

NARRATIVE: CASE EVENT DATE: 20230401
